FAERS Safety Report 18964173 (Version 1)
Quarter: 2021Q1

REPORT INFORMATION
  Report Type: Spontaneous
  Country: US (occurrence: US)
  Receive Date: 20210303
  Receipt Date: 20210303
  Transmission Date: 20210420
  Serious: Yes (Other)
  Sender: FDA-Public Use
  Company Number: US-AMERICAN REGENT INC-2021000495

PATIENT
  Age: 30 Year
  Sex: Female

DRUGS (4)
  1. TESTOSTERONE CYPIONATE INJECTION (0517?1830?01) [Suspect]
     Active Substance: TESTOSTERONE CYPIONATE
     Dosage: 50 MILLIGRAM, WEEKLY
     Route: 030
  2. TESTOSTERONE CYPIONATE INJECTION (0517?1830?01) [Suspect]
     Active Substance: TESTOSTERONE CYPIONATE
     Dosage: 140 MILLIGRAM WEEKLY
     Route: 030
  3. TESTOSTERONE CYPIONATE INJECTION (0517?1830?01) [Suspect]
     Active Substance: TESTOSTERONE CYPIONATE
     Indication: TRANSGENDER HORMONAL THERAPY
     Dosage: 100 MILLIGRAM WEEKLY
     Route: 030
  4. TESTOSTERONE CYPIONATE INJECTION (0517?1830?01) [Suspect]
     Active Substance: TESTOSTERONE CYPIONATE
     Dosage: 50?60 MILLIGRAM, WEEKLY
     Route: 030

REACTIONS (4)
  - Acne [Recovering/Resolving]
  - Product use issue [Unknown]
  - Hidradenitis [Recovering/Resolving]
  - Product use in unapproved indication [Unknown]
